FAERS Safety Report 10102910 (Version 2)
Quarter: 2014Q2

REPORT INFORMATION
  Report Type: Spontaneous
  Country: JP (occurrence: JP)
  Receive Date: 20140424
  Receipt Date: 20140618
  Transmission Date: 20141212
  Serious: Yes (Death)
  Sender: FDA-Public Use
  Company Number: JP-SA-2014SA048037

PATIENT
  Age: 60 Year
  Sex: Male
  Weight: 68 kg

DRUGS (9)
  1. ELPLAT [Suspect]
     Indication: PANCREATIC CARCINOMA
     Route: 041
     Dates: start: 20140401, end: 20140401
  2. TOPOTECIN [Suspect]
     Indication: PANCREATIC CARCINOMA
     Route: 041
     Dates: start: 20140401, end: 20140401
  3. ISOVORIN [Suspect]
     Indication: PANCREATIC CARCINOMA
     Route: 041
     Dates: start: 20140401, end: 20140401
  4. 5-FU [Suspect]
     Indication: PANCREATIC CARCINOMA
     Route: 040
     Dates: start: 20140401, end: 20140401
  5. 5-FU [Suspect]
     Indication: PANCREATIC CARCINOMA
     Route: 041
     Dates: start: 20140401, end: 20140401
  6. ALOXI [Concomitant]
     Dates: start: 20140401, end: 20140401
  7. DEXART [Concomitant]
     Dates: start: 20140401, end: 20140401
  8. EMEND [Concomitant]
     Dates: start: 20140401
  9. DECADRON [Concomitant]
     Dates: start: 20140402, end: 20140403

REACTIONS (4)
  - Cardio-respiratory arrest [Fatal]
  - Decreased appetite [Unknown]
  - Epigastric discomfort [Unknown]
  - Nausea [Unknown]
